FAERS Safety Report 6993251-3 (Version None)
Quarter: 2010Q3

REPORT INFORMATION
  Report Type: 
  Country: None (occurrence: None)
  Receive Date: 20100917
  Receipt Date: 20100204
  Transmission Date: 20110219
  Serious: No
  Sender: FDA-Public Use
  Company Number: US-ASTRAZENECA-2009SE19418

PATIENT
  Age: 692 Month
  Sex: Male
  Weight: 95.3 kg

DRUGS (5)
  1. SEROQUEL [Suspect]
     Indication: SCHIZOAFFECTIVE DISORDER
     Dosage: VARIOUS DOSAGE INCLUDING 300 MG
     Route: 048
     Dates: start: 20030301, end: 20070601
  2. ZOCOR [Concomitant]
     Indication: BLOOD CHOLESTEROL INCREASED
  3. ZOCOR [Concomitant]
     Indication: HYPERLIPIDAEMIA
  4. LESCOL [Concomitant]
     Indication: BLOOD TRIGLYCERIDES INCREASED
  5. ABILIFY [Concomitant]
     Dates: start: 20070601

REACTIONS (2)
  - OBESITY [None]
  - TYPE 2 DIABETES MELLITUS [None]
